FAERS Safety Report 5179135-4 (Version None)
Quarter: 2006Q4

REPORT INFORMATION
  Report Type: 
  Country: None (occurrence: None)
  Receive Date: 20061219
  Receipt Date: 20061212
  Transmission Date: 20070319
  Serious: Yes (Hospitalization)
  Sender: FDA-Public Use
  Company Number: US-KINGPHARMUSA00001-K200601568

PATIENT
  Age: 60 Year
  Sex: Female

DRUGS (11)
  1. ALTACE [Suspect]
     Indication: CORONARY ARTERY BYPASS
     Dosage: 5 MG, QD
     Route: 048
     Dates: start: 20020615
  2. GLIMEPIRIDE [Suspect]
     Indication: DIABETES MELLITUS
     Dosage: 4 MG, QD
     Route: 048
  3. ZYLORIC  /00003301/ [Suspect]
     Dosage: 300 MG, QD
     Route: 048
     Dates: start: 20040315
  4. NITRODERM [Suspect]
     Indication: CORONARY ARTERY BYPASS
     Dosage: 5 MG, 24H PATCH
     Route: 023
     Dates: start: 20020615, end: 20060215
  5. ZOCOR [Suspect]
     Indication: CORONARY ARTERY BYPASS
     Dosage: 20 MG, QD
     Route: 048
     Dates: start: 20020615
  6. KARDEGIC   /00002703/ [Suspect]
     Indication: CORONARY ARTERY BYPASS
     Dosage: 160 MG, QD
     Route: 048
     Dates: start: 20020615
  7. UMULINE NPH                        /01466201/ [Concomitant]
     Indication: DIABETES MELLITUS
  8. LEVOTHYROXINE SODIUM [Concomitant]
  9. ATARAX                             /00058402/ [Concomitant]
  10. LASILIX  /00032601/ [Concomitant]
     Indication: ACUTE PULMONARY OEDEMA
     Dates: start: 20040301
  11. IMOVANE [Concomitant]
     Dosage: 7.5 MG, UNK
     Route: 048
     Dates: start: 20040301

REACTIONS (3)
  - ANTINUCLEAR ANTIBODY POSITIVE [None]
  - DERMATITIS PSORIASIFORM [None]
  - LICHENOID KERATOSIS [None]
